FAERS Safety Report 6667349-3 (Version None)
Quarter: 2010Q2

REPORT INFORMATION
  Report Type: 
  Country: None (occurrence: None)
  Receive Date: 20100405
  Receipt Date: 20100322
  Transmission Date: 20101027
  Serious: Yes (Other)
  Sender: FDA-Public Use
  Company Number: US-ELI_LILLY_AND_COMPANY-US201003008114

PATIENT
  Sex: Female

DRUGS (42)
  1. FORTEO [Suspect]
     Indication: OSTEOPOROSIS
     Dosage: 20 UG, DAILY (1/D)
     Dates: start: 20100201
  2. VITAMIN D [Concomitant]
     Dosage: 50000 IU, WEEKLY (1/W)
  3. ZANAFLEX [Concomitant]
     Indication: MUSCLE RELAXANT THERAPY
  4. SOMA [Concomitant]
     Indication: MUSCLE RELAXANT THERAPY
  5. REQUIP [Concomitant]
     Dosage: 1 D/F, 3/D
  6. IMURAN [Concomitant]
     Dosage: 50 MG, 2 TABLETS IN THE MORNING
  7. PLAQUENIL /00072601/ [Concomitant]
     Dosage: 200 MG, EACH MORNING
  8. ZEBUTAL [Concomitant]
     Indication: MIGRAINE
     Dosage: 1 D/F, AS NEEDED
  9. VITAMIN D [Concomitant]
     Dosage: 10000 IU, DAILY (1/D)
  10. RITALIN [Concomitant]
     Dosage: 10 MG, UNK
  11. SYNTHROID [Concomitant]
     Dosage: 0.125 UG, DAILY (1/D)
  12. COENZYME Q10 [Concomitant]
     Dosage: 150 - 200  MG, DAILY (1/D)
  13. ROXICODONE [Concomitant]
     Indication: PAIN
     Dosage: 15 MG, UNK
  14. BUMETANIDE [Concomitant]
     Dosage: 20 MG, ONCE DAILY AS NEEDED
  15. SPIRONOLACTONE [Concomitant]
     Dosage: 50 MG, TWICE A DAY AS NEEDED
  16. HYDROCHLOROTHIAZIDE [Concomitant]
     Dosage: 50 MG, AS NEEDED
  17. DIAZEPAM [Concomitant]
     Dosage: 10 MG, EACH EVENING
  18. PHENERGAN [Concomitant]
     Dosage: 50 MG, TWICE DAILY AS NEEDED
     Route: 048
  19. LOPERAMIDE [Concomitant]
     Indication: DIARRHOEA
  20. COLACE [Concomitant]
  21. PSEUDOEPHEDRINE [Concomitant]
     Dosage: 120 MG, ONCE DAILY AS NEEDED
  22. ZOVIRAX /00587301/ [Concomitant]
     Indication: ORAL HERPES
  23. NYSTATIN [Concomitant]
     Indication: FUNGAL INFECTION
  24. NYSTATIN [Concomitant]
  25. LIBRAX [Concomitant]
     Indication: GASTROOESOPHAGEAL REFLUX DISEASE
  26. PEPCID [Concomitant]
     Indication: GASTROOESOPHAGEAL REFLUX DISEASE
  27. TUMS /00108001/ [Concomitant]
     Indication: GASTROOESOPHAGEAL REFLUX DISEASE
  28. AVINZA [Concomitant]
     Dosage: 90 MG, 2/D
  29. LEXAPRO [Concomitant]
     Dosage: 10 MG, 2/D
  30. NASACORT [Concomitant]
     Dosage: UNK, ONE TO TWO TIMES DAILY AS NEEDED
     Route: 045
  31. VERAMYST [Concomitant]
     Route: 045
  32. OXYGEN [Concomitant]
  33. PREDNISONE TAB [Concomitant]
     Dosage: 5 MG, EACH MORNING
     Route: 048
  34. REGLAN [Concomitant]
  35. ZANTAC [Concomitant]
  36. PROTONIX /01263201/ [Concomitant]
     Dosage: 40 MG, DAILY (1/D)
     Route: 048
  37. NEOSPORIN /00038301/ [Concomitant]
  38. BENADRYL [Concomitant]
  39. TYLENOL SINUS [Concomitant]
  40. BACTROBAN [Concomitant]
  41. XANAX [Concomitant]
     Dosage: 0.25 MG, DAILY (1/D)
  42. NEXIUM [Concomitant]

REACTIONS (6)
  - CLONIC CONVULSION [None]
  - GASTROOESOPHAGEAL REFLUX DISEASE [None]
  - PAIN [None]
  - RIB FRACTURE [None]
  - THORACIC VERTEBRAL FRACTURE [None]
  - URINARY TRACT INFECTION [None]
